FAERS Safety Report 23334798 (Version 8)
Quarter: 2025Q4

REPORT INFORMATION
  Report Type: Spontaneous
  Country: US (occurrence: US)
  Receive Date: 20231224
  Receipt Date: 20251025
  Transmission Date: 20260118
  Serious: No
  Sender: TRAVERE THERAPEUTICS
  Company Number: US-TRAVERE-2023TVT00823

PATIENT
  Age: 50 Year
  Sex: Male

DRUGS (5)
  1. FILSPARI [Suspect]
     Active Substance: SPARSENTAN
     Indication: IgA nephropathy
     Route: 048
     Dates: start: 20231111
  2. FILSPARI [Suspect]
     Active Substance: SPARSENTAN
     Indication: Nephropathy
     Dosage: 200 MG
     Route: 048
  3. FILSPARI [Suspect]
     Active Substance: SPARSENTAN
     Route: 048
  4. FARXIGA [Suspect]
     Active Substance: DAPAGLIFLOZIN PROPANEDIOL
  5. NORVASC [Concomitant]
     Active Substance: AMLODIPINE BESYLATE

REACTIONS (6)
  - Renal impairment [Unknown]
  - Oedema peripheral [None]
  - Arthralgia [Recovered/Resolved]
  - Hypotension [Unknown]
  - Fatigue [None]
  - Pain [None]

NARRATIVE: CASE EVENT DATE: 20250101
